FAERS Safety Report 15498235 (Version 1)
Quarter: 2018Q4

REPORT INFORMATION
  Report Type: Spontaneous
  Country: US (occurrence: US)
  Receive Date: 20181015
  Receipt Date: 20181015
  Transmission Date: 20190205
  Serious: Yes (Life-Threatening, Hospitalization, Disabling)
  Sender: FDA-Public Use
  Company Number: None

PATIENT
  Age: 39 Year
  Sex: Male
  Weight: 101 kg

DRUGS (1)
  1. TRUVADA [Suspect]
     Active Substance: EMTRICITABINE\TENOFOVIR DISOPROXIL FUMARATE
     Indication: PROPHYLAXIS AGAINST HIV INFECTION
     Route: 048
     Dates: start: 20180708, end: 20180715

REACTIONS (8)
  - Quadriplegia [None]
  - Hypersensitivity [None]
  - Urticaria [None]
  - Paralysis [None]
  - Paraesthesia [None]
  - Fall [None]
  - Muscular weakness [None]
  - Hypertension [None]

NARRATIVE: CASE EVENT DATE: 20180717
